FAERS Safety Report 8880231 (Version 2)
Quarter: 2015Q2

REPORT INFORMATION
  Report Type: Report from Study
  Country: DE (occurrence: DE)
  Receive Date: 20121101
  Receipt Date: 20150423
  Transmission Date: 20150821
  Serious: Yes (Other)
  Sender: FDA-Public Use
  Company Number: PHHO2012DE015627

PATIENT
  Age: 18 Year
  Sex: Male

DRUGS (12)
  1. DOXO [Concomitant]
     Indication: EWING^S SARCOMA
     Dosage: 39 MG,QD CUMULATIVE DOSE:708MG
     Route: 042
     Dates: start: 20110519, end: 20110914
  2. COLISTIN [Concomitant]
     Active Substance: COLISTIN
     Indication: PROPHYLAXIS
     Route: 048
     Dates: start: 20110529
  3. VINCRISTINE [Concomitant]
     Active Substance: VINCRISTINE
     Indication: EWING^S SARCOMA
     Dosage: 2 MG, QD, CUMULATIVE DOSE:24MG
     Route: 042
     Dates: start: 20110519, end: 20120210
  4. COTRIM [Concomitant]
     Active Substance: SULFAMETHOXAZOLE\TRIMETHOPRIM
     Indication: PROPHYLAXIS
     Dosage: 320 MG, QD
     Route: 048
     Dates: start: 20110529
  5. CYCLOPHOSPHAMIDE. [Concomitant]
     Active Substance: CYCLOPHOSPHAMIDE
     Indication: PRODUCT USED FOR UNKNOWN INDICATION
     Route: 065
  6. CLEXANE [Concomitant]
     Active Substance: ENOXAPARIN SODIUM
     Indication: THROMBOSIS PROPHYLAXIS
     Dosage: 40 MG, QD
     Route: 058
     Dates: start: 20111004, end: 20120629
  7. HOLOXAN [Suspect]
     Active Substance: IFOSFAMIDE
     Indication: EWING^S SARCOMA
     Dosage: 5620 MG, QD, CUMULATIVE DOSE:173.96G
     Route: 042
     Dates: start: 20110519, end: 20120211
  8. HUMALOG [Concomitant]
     Active Substance: INSULIN LISPRO
     Indication: DIABETES MELLITUS
     Dosage: UNK
     Route: 058
     Dates: start: 2000
  9. VP-16 [Concomitant]
     Active Substance: ETOPOSIDE
     Indication: EWING^S SARCOMA
     Dosage: 280 MG, QD, CUMULATIVE DOSE:6.42G
     Route: 042
     Dates: start: 20110519, end: 20120211
  10. ZOLEDRONATE [Suspect]
     Active Substance: ZOLEDRONIC ACID
     Indication: EWING^S SARCOMA
     Dosage: 4 MG, QD, CUMULATIVE DOSE:4MG
     Route: 042
     Dates: start: 20120210
  11. COSMEGEN [Concomitant]
     Active Substance: DACTINOMYCIN
     Indication: EWING^S SARCOMA
     Dosage: 1.35 MG, QD, CUMULATIVE DOSE:11.26MG
     Route: 042
     Dates: start: 20111019, end: 20111228
  12. AMPHO MORONAL [Concomitant]
     Indication: PROPHYLAXIS
     Dosage: 8 ML, QD
     Route: 048
     Dates: start: 20110529

REACTIONS (1)
  - Renal tubular disorder [Recovered/Resolved]

NARRATIVE: CASE EVENT DATE: 20120229
